FAERS Safety Report 12204659 (Version 1)
Quarter: 2016Q1

REPORT INFORMATION
  Report Type: Spontaneous
  Country: US (occurrence: None)
  Receive Date: 20160322
  Receipt Date: 20160322
  Transmission Date: 20160526
  Serious: Yes (Other)
  Sender: FDA-Public Use
  Company Number: None

PATIENT
  Age: 15 Year
  Sex: Male
  Weight: 81.19 kg

DRUGS (3)
  1. ABILIFY [Concomitant]
     Active Substance: ARIPIPRAZOLE
  2. LAMICTAL [Concomitant]
     Active Substance: LAMOTRIGINE
  3. TAMIFLU [Suspect]
     Active Substance: OSELTAMIVIR PHOSPHATE
     Indication: INFLUENZA
     Route: 048
     Dates: start: 20160318, end: 20160319

REACTIONS (3)
  - Resuscitation [None]
  - Hypersomnia [None]
  - Unresponsive to stimuli [None]

NARRATIVE: CASE EVENT DATE: 20160319
